FAERS Safety Report 5859799-X (Version None)
Quarter: 2008Q3

REPORT INFORMATION
  Report Type: 
  Country: None (occurrence: None)
  Receive Date: 20080827
  Receipt Date: 20080818
  Transmission Date: 20090109
  Serious: Yes (Hospitalization)
  Sender: FDA-Public Use
  Company Number: FR-BAYER-200824624GPV

PATIENT
  Age: 52 Year
  Sex: Male

DRUGS (1)
  1. IZILOX [Suspect]
     Indication: DRUG USE FOR UNKNOWN INDICATION
     Route: 048
     Dates: start: 20080501, end: 20080501

REACTIONS (1)
  - PANCYTOPENIA [None]
